FAERS Safety Report 8301453-9 (Version None)
Quarter: 2012Q2

REPORT INFORMATION
  Report Type: 
  Country: None (occurrence: None)
  Receive Date: 20120420
  Receipt Date: 20120417
  Transmission Date: 20120825
  Serious: Yes (Life-Threatening, Hospitalization)
  Sender: FDA-Public Use
  Company Number: FR-JNJFOC-20120212707

PATIENT
  Sex: Male
  Weight: 95 kg

DRUGS (7)
  1. ALDACTAZINE [Concomitant]
     Indication: CARDIAC FAILURE
     Route: 048
  2. OMEPRAZOLE [Concomitant]
     Indication: ULCER
     Route: 048
  3. AMLODIPINE BESYLATE [Concomitant]
     Indication: HYPERTENSION
     Route: 048
  4. ATORVASTATIN [Concomitant]
     Route: 048
  5. ALDACTAZINE [Concomitant]
     Indication: HYPERTENSION
     Route: 048
  6. DURAGESIC-100 [Suspect]
     Indication: PAIN
     Route: 062
     Dates: start: 20080101
  7. AMLODIPINE BESYLATE [Concomitant]
     Indication: CARDIAC FAILURE
     Route: 048

REACTIONS (4)
  - CONSCIOUSNESS FLUCTUATING [None]
  - HYPERCAPNIA [None]
  - RESPIRATORY FAILURE [None]
  - INCORRECT DRUG ADMINISTRATION DURATION [None]
